FAERS Safety Report 9812977 (Version 3)
Quarter: 2014Q2

REPORT INFORMATION
  Report Type: Spontaneous
  Country: US (occurrence: US)
  Receive Date: 20140113
  Receipt Date: 20140430
  Transmission Date: 20141212
  Serious: Yes (Hospitalization, Disabling, Other)
  Sender: FDA-Public Use
  Company Number: US-UCBSA-108137

PATIENT
  Sex: Male
  Weight: 108 kg

DRUGS (9)
  1. KEPPRA XR [Suspect]
     Indication: CONVULSION
     Dates: end: 201211
  2. KEPPRA [Suspect]
     Indication: CONVULSION
     Dosage: CRUSHED AND GIVEN VIA PEG TUBE, TAKING FROM YEAR AND 2 MONTHS
     Dates: start: 201211
  3. ASA [Concomitant]
  4. PAROXETINE HCL [Concomitant]
  5. PRAVASTATIN [Concomitant]
  6. AMLODIPINE [Concomitant]
  7. LISINOPRIL [Concomitant]
     Dosage: 40MG ONCE IN MORNING AND 5MG ONCE IN NIGHT
  8. METROPROLOL [Concomitant]
     Indication: CARDIAC DISORDER
  9. CARBIDOPA/LEVADOPA [Concomitant]

REACTIONS (8)
  - Parkinsonism [Not Recovered/Not Resolved]
  - Dysphagia [Not Recovered/Not Resolved]
  - Ulcer haemorrhage [Unknown]
  - Pneumonia [Unknown]
  - Erythema [Unknown]
  - Cold sweat [Unknown]
  - Wrong technique in drug usage process [Unknown]
  - Inappropriate schedule of drug administration [Recovered/Resolved]
